FAERS Safety Report 6015616-9 (Version None)
Quarter: 2008Q4

REPORT INFORMATION
  Report Type: 
  Country: None (occurrence: None)
  Receive Date: 20081222
  Receipt Date: 20081118
  Transmission Date: 20090506
  Serious: No
  Sender: FDA-Public Use
  Company Number: US-BAYER-200814455BCC

PATIENT
  Age: 84 Year
  Sex: Female
  Weight: 62 kg

DRUGS (4)
  1. ALEVE (CAPLET) [Suspect]
     Indication: ARTHRALGIA
     Dosage: TOTAL DAILY DOSE: 440 MG  UNIT DOSE: 220 MG
     Route: 048
     Dates: start: 20081104, end: 20081114
  2. METOPROLOL [Concomitant]
     Indication: BLOOD PRESSURE ABNORMAL
  3. PRAVASTATIN [Concomitant]
     Indication: BLOOD CHOLESTEROL INCREASED
  4. LISINOPRIL [Concomitant]
     Indication: BLOOD PRESSURE ABNORMAL

REACTIONS (1)
  - BLOOD PRESSURE INCREASED [None]
